FAERS Safety Report 5134469-4 (Version None)
Quarter: 2006Q4

REPORT INFORMATION
  Report Type: 
  Country: None (occurrence: None)
  Receive Date: 20061019
  Receipt Date: 20061004
  Transmission Date: 20070319
  Serious: Yes (Hospitalization)
  Sender: FDA-Public Use
  Company Number: REM_00275_2006

PATIENT
  Age: 43 Year
  Sex: Female

DRUGS (20)
  1. REMODULIN [Suspect]
     Indication: ATRIAL SEPTAL DEFECT
     Dosage: 38 NG/KG/MIN CONTINUOUS; IV
     Route: 042
     Dates: start: 20050110, end: 20051020
  2. REMODULIN [Suspect]
     Indication: PULMONARY HYPERTENSION
     Dosage: 38 NG/KG/MIN CONTINUOUS; IV
     Route: 042
     Dates: start: 20050110, end: 20051020
  3. REMODULIN [Suspect]
     Indication: ATRIAL SEPTAL DEFECT
     Dosage: NI
     Dates: start: 20051020
  4. REMODULIN [Suspect]
     Indication: PULMONARY HYPERTENSION
     Dosage: NI
     Dates: start: 20051020
  5. TRACLEER [Concomitant]
  6. VIAGRA [Concomitant]
  7. TORSEMIDE [Concomitant]
  8. DIGOXIN [Concomitant]
  9. SERTRALINE [Concomitant]
  10. DIPHENHYDRAMINE HCL [Concomitant]
  11. WARFARIN SODIUM [Concomitant]
  12. ALBUTEROL [Concomitant]
  13. IPRATROPIUM BROMIDE [Concomitant]
  14. FERROUS SULFATE TAB [Concomitant]
  15. POTASSIUM ACETATE [Concomitant]
  16. LANSOPRAZOLE [Concomitant]
  17. FLUTICASONE PROPIONATE [Concomitant]
  18. HYDROCHLOROTHIAZIDE [Concomitant]
  19. SPIRONOLACTONE [Concomitant]
  20. OXYGEN [Concomitant]

REACTIONS (24)
  - ABDOMINAL PAIN UPPER [None]
  - ALANINE AMINOTRANSFERASE INCREASED [None]
  - ANAEMIA [None]
  - ANURIA [None]
  - ASPARTATE AMINOTRANSFERASE INCREASED [None]
  - CENTRAL LINE INFECTION [None]
  - DIZZINESS [None]
  - ENDOCARDITIS [None]
  - EYE PAIN [None]
  - GALLBLADDER DISORDER [None]
  - GOITRE [None]
  - HEADACHE [None]
  - HYPOKALAEMIA [None]
  - HYPOTENSION [None]
  - INTERNATIONAL NORMALISED RATIO INCREASED [None]
  - MYALGIA [None]
  - PERITONEAL EFFUSION [None]
  - PLEURAL EFFUSION [None]
  - PNEUMONIA PRIMARY ATYPICAL [None]
  - RIGHT VENTRICULAR SYSTOLIC PRESSURE INCREASED [None]
  - SERRATIA BACTERAEMIA [None]
  - STAPHYLOCOCCAL INFECTION [None]
  - ULTRASOUND DOPPLER ABNORMAL [None]
  - VOMITING [None]
